FAERS Safety Report 13352894 (Version 4)
Quarter: 2024Q3

REPORT INFORMATION
  Report Type: Spontaneous
  Country: FR (occurrence: FR)
  Receive Date: 20170320
  Receipt Date: 20240913
  Transmission Date: 20241016
  Serious: Yes (Death, Hospitalization, Other)
  Sender: AMGEN
  Company Number: FR-AMGEN-FRASP2017039373

PATIENT
  Age: 69 Year
  Sex: Male

DRUGS (17)
  1. VECTIBIX [Suspect]
     Active Substance: PANITUMUMAB
     Indication: Colorectal cancer
     Dosage: 684 MG, UNK
     Route: 040
     Dates: start: 20170301, end: 20170301
  2. ONDANSETRON [Suspect]
     Active Substance: ONDANSETRON
     Indication: Prophylaxis of nausea and vomiting
     Dosage: 8 MG, UNK
     Route: 042
     Dates: start: 20170301, end: 20170301
  3. SOLU-MEDROL [Suspect]
     Active Substance: METHYLPREDNISOLONE SODIUM SUCCINATE
     Indication: Product used for unknown indication
     Dosage: 80 MG, UNK
     Route: 042
     Dates: start: 20170301, end: 20170301
  4. LEUCOVORIN CALCIUM [Suspect]
     Active Substance: LEUCOVORIN CALCIUM
     Indication: Product used for unknown indication
     Dosage: 800 MG, UNK
     Route: 042
     Dates: start: 20170301, end: 20170301
  5. POLARAMINE [Suspect]
     Active Substance: DEXCHLORPHENIRAMINE MALEATE
     Indication: Product used for unknown indication
     Dosage: UNK
     Route: 042
     Dates: start: 20170301, end: 20170301
  6. CHONDROITIN SULFATE (CHICKEN) [Concomitant]
     Active Substance: CHONDROITIN SULFATE (CHICKEN)
     Dosage: UNK
  7. PRAVASTATIN SODIUM [Concomitant]
     Active Substance: PRAVASTATIN SODIUM
     Dosage: UNK
  8. IXPRIM [Concomitant]
     Active Substance: ACETAMINOPHEN\TRAMADOL HYDROCHLORIDE
     Dosage: UNK
  9. GINKGO EXTRACT\HEPTAMINOL\TROXERUTIN [Concomitant]
     Active Substance: GINKGO\HEPTAMINOL\TROXERUTIN
     Dosage: UNK
  10. RABEPRAZOLE SODIUM [Concomitant]
     Active Substance: RABEPRAZOLE SODIUM
     Dosage: 20 MG, UNK
  11. AMLODIPINE BESYLATE\OLMESARTAN MEDOXOMIL [Concomitant]
     Active Substance: AMLODIPINE BESYLATE\OLMESARTAN MEDOXOMIL
     Dosage: UNK
  12. VOLTAREN [Concomitant]
     Active Substance: DICLOFENAC SODIUM
     Dosage: 75 MG, UNK
  13. ALLOPURINOL [Concomitant]
     Active Substance: ALLOPURINOL
     Dosage: UNK
  14. INNOVAIR [Concomitant]
     Active Substance: BECLOMETHASONE DIPROPIONATE\FORMOTEROL
     Dosage: UNK
  15. HYDROCHLOROTHIAZIDE\NEBIVOLOL HYDROCHLORIDE [Concomitant]
     Active Substance: HYDROCHLOROTHIAZIDE\NEBIVOLOL HYDROCHLORIDE
     Dosage: UNK
  16. Previscan [Concomitant]
     Dosage: UNK
  17. FUROSEMIDE [Concomitant]
     Active Substance: FUROSEMIDE
     Dosage: UNK

REACTIONS (3)
  - Coma [Fatal]
  - Cardiac arrest [Fatal]
  - Hypoxia [Fatal]

NARRATIVE: CASE EVENT DATE: 20170302
